FAERS Safety Report 18742494 (Version 3)
Quarter: 2021Q1

REPORT INFORMATION
  Report Type: Spontaneous
  Country: US (occurrence: US)
  Receive Date: 20210114
  Receipt Date: 20210312
  Transmission Date: 20210419
  Serious: Yes (Death, Hospitalization, Other)
  Sender: FDA-Public Use
  Company Number: US-INCYTE CORPORATION-2020IN012945

PATIENT

DRUGS (1)
  1. JAKAFI [Suspect]
     Active Substance: RUXOLITINIB
     Indication: MYELOFIBROSIS
     Dosage: 15 MILLIGRAM, QOD
     Route: 048
     Dates: start: 20161012

REACTIONS (5)
  - Treatment noncompliance [Unknown]
  - Sepsis [Unknown]
  - Death [Fatal]
  - COVID-19 pneumonia [Unknown]
  - Acute kidney injury [Unknown]
